FAERS Safety Report 9392386 (Version 2)
Quarter: 2013Q3

REPORT INFORMATION
  Report Type: Spontaneous
  Country: IT (occurrence: IT)
  Receive Date: 20130710
  Receipt Date: 20130802
  Transmission Date: 20140515
  Serious: Yes (Hospitalization)
  Sender: FDA-Public Use
  Company Number: IT-BRISTOL-MYERS SQUIBB COMPANY-19082569

PATIENT
  Age: 84 Year
  Sex: Female

DRUGS (8)
  1. COUMADIN TABS 5 MG [Suspect]
     Indication: ATRIAL FIBRILLATION
     Route: 048
     Dates: start: 20050101, end: 20130608
  2. PLAUNAC [Concomitant]
     Dosage: TABS
     Route: 048
  3. LEVOPRAID [Concomitant]
     Route: 048
  4. CARDICOR [Concomitant]
     Route: 048
  5. TORVAST [Concomitant]
     Dosage: TABS
     Route: 048
  6. TAVOR [Concomitant]
     Dosage: 1DF: 1 UNITS NOS
     Route: 048
  7. SERETIDE [Concomitant]
     Dosage: 1DF:50/500 POWDER FOR INHALATION, 2 UNITS.
     Route: 048
  8. XANAX [Concomitant]
     Dosage: 1DF: 1 UNIT NOS
     Route: 048

REACTIONS (3)
  - Subdural haematoma [Unknown]
  - Head injury [Unknown]
  - Fall [Unknown]
